FAERS Safety Report 5526754-9 (Version None)
Quarter: 2007Q4

REPORT INFORMATION
  Report Type: 
  Country: None (occurrence: None)
  Receive Date: 20071127
  Receipt Date: 20071121
  Transmission Date: 20080405
  Serious: Yes (Hospitalization)
  Sender: FDA-Public Use
  Company Number: HQWYE738401MAR05

PATIENT
  Sex: Male
  Weight: 78 kg

DRUGS (3)
  1. SIROLIMUS [Suspect]
     Indication: PROPHYLAXIS AGAINST TRANSPLANT REJECTION
     Route: 048
     Dates: start: 20041023
  2. CORTICOSTEROID NOS [Concomitant]
     Dosage: UNSPECIFIED
     Route: 048
  3. MYCOPHENOLATE MOFETIL [Concomitant]
     Dosage: UNSPECIFIED
     Route: 048
     Dates: end: 20050225

REACTIONS (1)
  - AGRANULOCYTOSIS [None]
